FAERS Safety Report 9202619 (Version 6)
Quarter: 2013Q4

REPORT INFORMATION
  Report Type: Spontaneous
  Country: US (occurrence: US)
  Receive Date: 20130401
  Receipt Date: 20131025
  Transmission Date: 20140711
  Serious: Yes (Hospitalization, Disabling, Other)
  Sender: FDA-Public Use
  Company Number: US-MERCK-1206USA03577

PATIENT
  Sex: Female
  Weight: 72.11 kg

DRUGS (11)
  1. FOSAMAX [Suspect]
     Indication: OSTEOPENIA
     Dosage: QW
     Route: 048
  2. FOSAMAX [Suspect]
     Indication: OSTEOPOROSIS
     Dosage: 10 MG, UNK
     Route: 048
  3. FOSAMAX [Suspect]
     Dosage: 70 MG, QW
     Route: 048
  4. FOSAMAX PLUS D [Suspect]
     Route: 048
  5. ALENDRONATE SODIUM [Suspect]
     Indication: OSTEOPENIA
     Dosage: 70 MG, UNK
     Route: 048
  6. CALCIUM (UNSPECIFIED) (+) VITAMIN D (UNSPECIFIED) [Concomitant]
     Dosage: UNK
     Dates: start: 1960
  7. VITAMINS (UNSPECIFIED) [Concomitant]
     Dosage: UNK
     Dates: start: 1960
  8. ESTROGENS (UNSPECIFIED) [Concomitant]
     Indication: HORMONE REPLACEMENT THERAPY
     Dosage: UNK
     Dates: start: 1988
  9. CALCIUM (UNSPECIFIED) [Concomitant]
     Indication: OSTEOPOROSIS
     Dosage: 400 -1200 MG, UNK
  10. VITAMIN D (UNSPECIFIED) [Concomitant]
     Indication: OSTEOPOROSIS
  11. NONSTEROIDAL ANTI-INFLAMMATORY DRUG (UNSPECIFIED) [Concomitant]

REACTIONS (165)
  - Upper limb fracture [Unknown]
  - Osteopetrosis [Unknown]
  - Hand fracture [Unknown]
  - Rib fracture [Unknown]
  - Rib fracture [Unknown]
  - Osteosclerosis [Unknown]
  - Fall [Unknown]
  - Pathological fracture [Unknown]
  - Haemoglobin decreased [Recovered/Resolved]
  - Haematocrit decreased [Recovered/Resolved]
  - Incision site haematoma [Unknown]
  - Incision site infection [Unknown]
  - Pulmonary fibrosis [Unknown]
  - Weight increased [Unknown]
  - Vitiligo [Unknown]
  - Acne [Not Recovered/Not Resolved]
  - Drug dependence [Unknown]
  - Device malfunction [Unknown]
  - Oropharyngeal pain [Unknown]
  - Palatal oedema [Unknown]
  - Pharyngeal erythema [Unknown]
  - Rales [Unknown]
  - Spinal osteoarthritis [Unknown]
  - Deformity thorax [Unknown]
  - Abdominal mass [Unknown]
  - Abdominal operation [Unknown]
  - Insomnia [Unknown]
  - Spinal osteoarthritis [Unknown]
  - Leukocytosis [Unknown]
  - Shift to the left [Unknown]
  - Platelet count increased [Unknown]
  - Hypoxia [Recovering/Resolving]
  - Dehydration [Recovering/Resolving]
  - Anaemia [Recovering/Resolving]
  - Respiratory distress [Recovering/Resolving]
  - Escherichia urinary tract infection [Recovering/Resolving]
  - Hypotension [Recovering/Resolving]
  - Stress [Unknown]
  - Foot operation [Unknown]
  - Stress urinary incontinence [Unknown]
  - Hypercholesterolaemia [Unknown]
  - Type 2 diabetes mellitus [Recovered/Resolved]
  - Vasculitis [Unknown]
  - Migraine [Unknown]
  - Hypertension [Unknown]
  - Cholelithiasis [Unknown]
  - Asthma [Unknown]
  - Depression [Unknown]
  - Urinary tract infection [Unknown]
  - Long QT syndrome [Unknown]
  - Atrial fibrillation [Unknown]
  - Osteoarthritis [Unknown]
  - Spinal osteoarthritis [Unknown]
  - Fibromyalgia [Unknown]
  - Hypertriglyceridaemia [Unknown]
  - Bronchitis [Unknown]
  - Cardiomyopathy [Unknown]
  - Coronary artery disease [Unknown]
  - Intervertebral disc degeneration [Unknown]
  - Bronchiolitis [Unknown]
  - Autoimmune disorder [Not Recovered/Not Resolved]
  - Interstitial lung disease [Not Recovered/Not Resolved]
  - Pathological fracture [Unknown]
  - Pulmonary congestion [Unknown]
  - Lethargy [Recovering/Resolving]
  - Dermatitis [Unknown]
  - Incision site dermatitis [Unknown]
  - Pain [Unknown]
  - Radicular pain [Unknown]
  - Organising pneumonia [Unknown]
  - Arthritis [Unknown]
  - Reflux laryngitis [Unknown]
  - Oesophageal disorder [Unknown]
  - Contusion [Unknown]
  - Road traffic accident [Unknown]
  - Muscle strain [Unknown]
  - Liver function test abnormal [Unknown]
  - White blood cell count increased [Unknown]
  - Oophorectomy bilateral [Unknown]
  - Electrocardiogram T wave inversion [Unknown]
  - Pleuritic pain [Unknown]
  - Cushingoid [Unknown]
  - Interstitial lung disease [Unknown]
  - Antineutrophil cytoplasmic antibody positive [Unknown]
  - Granulomatosis with polyangiitis [Unknown]
  - Hypertension [Recovered/Resolved]
  - Hepatotoxicity [Unknown]
  - Drug-induced liver injury [Unknown]
  - Lipohypertrophy [Unknown]
  - Urinary tract infection [Unknown]
  - Urosepsis [Unknown]
  - Psoriasis [Unknown]
  - Fatigue [Unknown]
  - Arthritis bacterial [Recovering/Resolving]
  - Pyrexia [Unknown]
  - Pyrexia [Unknown]
  - Pyrexia [Unknown]
  - Malaise [Unknown]
  - Malaise [Unknown]
  - Arthralgia [Unknown]
  - Local swelling [Unknown]
  - Myalgia [Unknown]
  - Overdose [Unknown]
  - Diarrhoea [Recovered/Resolved]
  - Muscle spasms [Unknown]
  - Vomiting [Unknown]
  - Drug ineffective [Unknown]
  - Gastritis [Unknown]
  - Femur fracture [Recovered/Resolved]
  - Intramedullary rod insertion [Recovered/Resolved]
  - Fracture nonunion [Not Recovered/Not Resolved]
  - Open reduction of fracture [Not Recovered/Not Resolved]
  - Removal of internal fixation [Not Recovered/Not Resolved]
  - Bone graft [Not Recovered/Not Resolved]
  - Open reduction of fracture [Not Recovered/Not Resolved]
  - External fixation of fracture [Unknown]
  - Internal fixation of fracture [Unknown]
  - Bone graft [Unknown]
  - Open reduction of fracture [Unknown]
  - Skull fracture [Unknown]
  - Depression [Unknown]
  - Suicidal ideation [Unknown]
  - Adverse drug reaction [Unknown]
  - Hallucination, visual [Unknown]
  - Merycism [Unknown]
  - Anhedonia [Unknown]
  - Sepsis [Recovering/Resolving]
  - Renal failure acute [Recovering/Resolving]
  - Acute respiratory failure [Recovering/Resolving]
  - Septic shock [Recovering/Resolving]
  - Systemic inflammatory response syndrome [Recovering/Resolving]
  - Acute myocardial infarction [Recovering/Resolving]
  - Organising pneumonia [Recovering/Resolving]
  - Hyponatraemia [Recovering/Resolving]
  - Cardiac failure congestive [Recovering/Resolving]
  - Extubation [Recovering/Resolving]
  - Blood glucose increased [Recovering/Resolving]
  - Mental status changes [Recovering/Resolving]
  - Delirium [Recovering/Resolving]
  - Thrombocytosis [Recovering/Resolving]
  - Dehydration [Unknown]
  - Hypotension [Unknown]
  - Mental status changes [Unknown]
  - Implantable defibrillator insertion [Unknown]
  - Osteoarthritis [Unknown]
  - Syncope [Unknown]
  - Hip arthroplasty [Unknown]
  - Skin graft [Unknown]
  - Sinus arrhythmia [Unknown]
  - Cholecystectomy [Unknown]
  - Femur fracture [Unknown]
  - Ventricular tachycardia [Unknown]
  - Medical device removal [Unknown]
  - Ventricular fibrillation [Recovered/Resolved]
  - Intramedullary rod insertion [Unknown]
  - Adverse drug reaction [Unknown]
  - Surgery [Unknown]
  - Femur fracture [Unknown]
  - Hip arthroplasty [Unknown]
  - Osteonecrosis [Unknown]
  - Vomiting [Unknown]
  - Femur fracture [Unknown]
  - Hand fracture [Unknown]
  - Fracture nonunion [Unknown]
  - Mental status changes [Recovering/Resolving]
